FAERS Safety Report 16070157 (Version 1)
Quarter: 2019Q1

REPORT INFORMATION
  Report Type: Spontaneous
  Country: GB (occurrence: GB)
  Receive Date: 20190314
  Receipt Date: 20190314
  Transmission Date: 20190418
  Serious: Yes (Other)
  Sender: FDA-Public Use
  Company Number: GB-ACCORD-112974

PATIENT
  Age: 32 Year
  Sex: Female
  Weight: 123 kg

DRUGS (1)
  1. QUETIAPINE. [Suspect]
     Active Substance: QUETIAPINE
     Indication: PRODUCT USED FOR UNKNOWN INDICATION
     Route: 048
     Dates: start: 20180921, end: 20180922

REACTIONS (7)
  - Dizziness [Recovering/Resolving]
  - Daydreaming [Recovering/Resolving]
  - Vision blurred [Recovering/Resolving]
  - Fatigue [Recovered/Resolved]
  - Hypersomnia [Recovered/Resolved]
  - Nausea [Recovered/Resolved]
  - Feeling abnormal [Recovering/Resolving]
